FAERS Safety Report 8921038 (Version 3)
Quarter: 2013Q1

REPORT INFORMATION
  Report Type: Spontaneous
  Country: US (occurrence: US)
  Receive Date: 20121123
  Receipt Date: 20130305
  Transmission Date: 20140127
  Serious: No
  Sender: FDA-Public Use
  Company Number: US-009507513-1211USA008189

PATIENT
  Age: 20 Year
  Sex: Female
  Weight: 59.41 kg

DRUGS (1)
  1. IMPLANON [Suspect]
     Indication: CONTRACEPTION
     Dosage: 68 MG/ 3 YEAR IMPLANT
     Dates: start: 201105

REACTIONS (5)
  - Implant site pain [Recovered/Resolved]
  - Device breakage [Unknown]
  - Device damage [Recovered/Resolved]
  - Device difficult to use [Recovered/Resolved]
  - Product quality issue [Recovered/Resolved]
